FAERS Safety Report 8111876-9 (Version None)
Quarter: 2012Q1

REPORT INFORMATION
  Report Type: 
  Country: None (occurrence: None)
  Receive Date: 20120203
  Receipt Date: 20120128
  Transmission Date: 20120608
  Serious: Yes (Life-Threatening, Hospitalization, Other)
  Sender: FDA-Public Use
  Company Number: US-BAYER-2011-024129

PATIENT
  Age: 36 Year
  Sex: Female

DRUGS (1)
  1. DROSPIRENONE AND ETHINYL ESTRADIOL [Suspect]
     Indication: MENSTRUATION IRREGULAR
     Dosage: UNK
     Dates: start: 20090101, end: 20100801

REACTIONS (11)
  - GALLBLADDER DISORDER [None]
  - INJURY [None]
  - ANHEDONIA [None]
  - THROMBOSIS [None]
  - CONVULSION [None]
  - TRANSIENT ISCHAEMIC ATTACK [None]
  - EMOTIONAL DISTRESS [None]
  - GENERAL PHYSICAL HEALTH DETERIORATION [None]
  - DIZZINESS [None]
  - HEADACHE [None]
  - PAIN [None]
